FAERS Safety Report 6392086-2 (Version None)
Quarter: 2009Q4

REPORT INFORMATION
  Report Type: 
  Country: None (occurrence: None)
  Receive Date: 20091007
  Receipt Date: 20091002
  Transmission Date: 20100525
  Serious: Yes (Other)
  Sender: FDA-Public Use
  Company Number: AT-AVENTIS-200920538GDDC

PATIENT
  Sex: Female

DRUGS (3)
  1. ARAVA [Suspect]
     Route: 048
  2. NEXIUM [Concomitant]
     Dosage: DOSE: UNK
  3. CALCIUM [Concomitant]
     Dosage: DOSE: UNK

REACTIONS (1)
  - MYELODYSPLASTIC SYNDROME [None]
